FAERS Safety Report 22322429 (Version 4)
Quarter: 2024Q1

REPORT INFORMATION
  Report Type: Report from Study
  Country: AR (occurrence: AR)
  Receive Date: 20230516
  Receipt Date: 20240116
  Transmission Date: 20240410
  Serious: Yes (Hospitalization, Other)
  Sender: FDA-Public Use
  Company Number: AR-002147023-NVSC2022AR115386

PATIENT
  Sex: Female

DRUGS (3)
  1. COSENTYX [Suspect]
     Active Substance: SECUKINUMAB
     Indication: Psoriatic arthropathy
     Dosage: 300 MG, QMO
     Route: 058
     Dates: start: 20171004
  2. COSENTYX [Suspect]
     Active Substance: SECUKINUMAB
     Dosage: 300 MG, Q2W
     Route: 058
  3. COSENTYX [Suspect]
     Active Substance: SECUKINUMAB
     Dosage: UNK
     Route: 065

REACTIONS (25)
  - Back pain [Unknown]
  - Urinary tract infection [Unknown]
  - Bone pain [Unknown]
  - Pain in extremity [Unknown]
  - Arthralgia [Unknown]
  - Intervertebral disc protrusion [Unknown]
  - Weight bearing difficulty [Unknown]
  - Arthritis [Unknown]
  - Vitamin D decreased [Unknown]
  - Condition aggravated [Unknown]
  - Foot deformity [Unknown]
  - Pain [Unknown]
  - Inflammation [Unknown]
  - Fibromyalgia [Unknown]
  - Hernia [Unknown]
  - Arthropathy [Unknown]
  - Limb injury [Unknown]
  - Joint injury [Unknown]
  - Gait disturbance [Unknown]
  - Pruritus [Unknown]
  - Pyrexia [Unknown]
  - Macule [Unknown]
  - Tooth deposit [Unknown]
  - Inappropriate schedule of product administration [Unknown]
  - Drug ineffective [Unknown]

NARRATIVE: CASE EVENT DATE: 20220101
